FAERS Safety Report 9736713 (Version 1)
Quarter: 2013Q4

REPORT INFORMATION
  Report Type: Spontaneous
  Country: US (occurrence: US)
  Receive Date: 20131206
  Receipt Date: 20131206
  Transmission Date: 20140711
  Serious: No
  Sender: FDA-Public Use
  Company Number: US-GILEAD-2009-0023887

PATIENT
  Age: 61 Year
  Sex: Female

DRUGS (10)
  1. LETAIRIS [Suspect]
     Indication: PULMONARY ARTERIAL HYPERTENSION
     Route: 048
     Dates: start: 20090729
  2. FLOLAN [Concomitant]
  3. WARFARIN [Concomitant]
  4. FUROSEMIDE [Concomitant]
  5. SPIRINOLACTONE [Concomitant]
  6. DURAGESIC [Concomitant]
  7. HYDROCODONE/APAP [Concomitant]
  8. TEMAZEPAM [Concomitant]
  9. CALCIUM 500 WITH D [Concomitant]
  10. MULTIVITAMIN [Concomitant]

REACTIONS (3)
  - Nausea [Not Recovered/Not Resolved]
  - Dyspnoea [Not Recovered/Not Resolved]
  - Headache [Not Recovered/Not Resolved]
